FAERS Safety Report 20808540 (Version 1)
Quarter: 2022Q2

REPORT INFORMATION
  Report Type: Spontaneous
  Country: US (occurrence: US)
  Receive Date: 20220510
  Receipt Date: 20220510
  Transmission Date: 20220721
  Serious: No
  Sender: FDA-Public Use
  Company Number: US-ELI_LILLY_AND_COMPANY-US202205001041

PATIENT
  Sex: Male

DRUGS (2)
  1. TRULICITY [Suspect]
     Active Substance: DULAGLUTIDE
     Indication: Product used for unknown indication
     Dosage: 1.5 MG, WEEKLY (1/W)
     Route: 058
     Dates: start: 20210521
  2. HUMALOG [Suspect]
     Active Substance: INSULIN LISPRO
     Indication: Product used for unknown indication
     Dosage: 24 U, TID
     Route: 065
     Dates: start: 20210428

REACTIONS (6)
  - Blood glucose increased [Unknown]
  - Illness [Unknown]
  - Somnolence [Unknown]
  - Headache [Unknown]
  - Vomiting [Unknown]
  - Blood glucose decreased [Unknown]
